FAERS Safety Report 21186030 (Version 5)
Quarter: 2022Q4

REPORT INFORMATION
  Report Type: Report from Study
  Country: FR (occurrence: FR)
  Receive Date: 20220808
  Receipt Date: 20221201
  Transmission Date: 20230113
  Serious: Yes (Life-Threatening, Other)
  Sender: FDA-Public Use
  Company Number: FR-SA-SAC20220803001776

PATIENT
  Age: 69 Year
  Sex: Male
  Weight: 75 kg

DRUGS (22)
  1. ISATUXIMAB [Suspect]
     Active Substance: ISATUXIMAB
     Indication: Plasma cell myeloma
     Dosage: 760 MG
     Route: 065
     Dates: start: 20220719, end: 20220719
  2. ISATUXIMAB [Suspect]
     Active Substance: ISATUXIMAB
     Dosage: 760 MG
     Route: 065
     Dates: start: 20220705, end: 20220705
  3. ISATUXIMAB [Suspect]
     Active Substance: ISATUXIMAB
     Dosage: 760 MG
     Dates: start: 20220809, end: 20220809
  4. ISATUXIMAB [Suspect]
     Active Substance: ISATUXIMAB
     Dosage: 740 MG
     Dates: start: 20220927, end: 20220927
  5. ISATUXIMAB [Suspect]
     Active Substance: ISATUXIMAB
     Dosage: 760 MG
     Dates: start: 20221003, end: 20221011
  6. LENALIDOMIDE [Suspect]
     Active Substance: LENALIDOMIDE
     Indication: Plasma cell myeloma
     Dosage: 25 MG
     Dates: start: 20220725, end: 20220725
  7. LENALIDOMIDE [Suspect]
     Active Substance: LENALIDOMIDE
     Dosage: 25 MG
     Dates: start: 20220705, end: 20220705
  8. LENALIDOMIDE [Suspect]
     Active Substance: LENALIDOMIDE
     Dosage: 25 MG
     Dates: start: 20221003, end: 20221003
  9. BORTEZOMIB [Suspect]
     Active Substance: BORTEZOMIB
     Indication: Plasma cell myeloma
     Dosage: 2.50 MG
     Dates: start: 20220719, end: 20220719
  10. BORTEZOMIB [Suspect]
     Active Substance: BORTEZOMIB
     Dosage: 2.50 MG
     Dates: start: 20220705, end: 20220705
  11. BORTEZOMIB [Suspect]
     Active Substance: BORTEZOMIB
     Dosage: 2.45 MG
     Dates: start: 20220927, end: 20220927
  12. VALACYCLOVIR HYDROCHLORIDE [Concomitant]
     Active Substance: VALACYCLOVIR HYDROCHLORIDE
     Indication: Prophylaxis
     Dosage: 500 MG
     Route: 048
     Dates: start: 20220621
  13. BACTRIM [Concomitant]
     Active Substance: SULFAMETHOXAZOLE\TRIMETHOPRIM
     Indication: Prophylaxis
     Dosage: UNK UNK, TIW
     Route: 048
     Dates: start: 20220622
  14. LEUCOVORIN CALCIUM [Concomitant]
     Active Substance: LEUCOVORIN CALCIUM
     Indication: Prophylaxis
     Dosage: 25 MG, QW
     Route: 048
     Dates: start: 20220622
  15. DEXERIL [Concomitant]
     Indication: Prophylaxis
     Dosage: DOSE: 1 APPLICATIION PER DAY
     Dates: start: 20220705
  16. SODIUM BICARBONATE [Concomitant]
     Active Substance: SODIUM BICARBONATE
     Indication: Prophylaxis
     Dosage: UNK, 6ID
     Route: 048
     Dates: start: 20220705
  17. KARDEGIC [Concomitant]
     Active Substance: ASPIRIN DL-LYSINE
     Indication: Prophylaxis
     Dosage: 75 MG
     Route: 048
     Dates: start: 20220705
  18. ACETAMINOPHEN [Concomitant]
     Active Substance: ACETAMINOPHEN
     Indication: Back pain
     Dosage: 1 G
     Route: 048
     Dates: start: 20220705
  19. TRAMADA [Concomitant]
     Indication: Back pain
     Dosage: 50 MG
     Route: 048
     Dates: start: 20220705
  20. EUPANTOL [Concomitant]
     Active Substance: PANTOPRAZOLE SODIUM
     Indication: Prophylaxis
     Dosage: 40 MG
     Route: 048
     Dates: start: 20220621
  21. DEXAMETHASONE [Suspect]
     Active Substance: DEXAMETHASONE
     Indication: Plasma cell myeloma
     Dosage: 20 MG
     Dates: start: 20220705, end: 20220705
  22. DEXAMETHASONE [Suspect]
     Active Substance: DEXAMETHASONE
     Dosage: 20 MG
     Dates: start: 20220719, end: 20220719

REACTIONS (2)
  - Neutropenia [Recovered/Resolved]
  - Hypomania [Recovered/Resolved]

NARRATIVE: CASE EVENT DATE: 20220726
